FAERS Safety Report 11360810 (Version 1)
Quarter: 2015Q3

REPORT INFORMATION
  Report Type: Spontaneous
  Country: BR (occurrence: BR)
  Receive Date: 20150810
  Receipt Date: 20150810
  Transmission Date: 20151125
  Serious: Yes (Other)
  Sender: FDA-Public Use
  Company Number: BR-PFIZER INC-2015256554

PATIENT
  Age: 49 Year
  Sex: Female
  Weight: 65 kg

DRUGS (7)
  1. LYRICA [Suspect]
     Active Substance: PREGABALIN
     Indication: FIBROMYALGIA
     Dosage: 75 MG
     Route: 048
     Dates: start: 201412
  2. LYRICA [Suspect]
     Active Substance: PREGABALIN
     Dosage: 450 MG (3 TABLETS PER DAY)
     Route: 048
  3. TRILEPTAL [Concomitant]
     Active Substance: OXCARBAZEPINE
     Indication: EPILEPSY
     Dosage: 2 DF, DAILY
     Dates: start: 2005
  4. LYRICA [Suspect]
     Active Substance: PREGABALIN
     Dosage: 150 MG
     Route: 048
  5. FRISIUM [Concomitant]
     Active Substance: CLOBAZAM
     Indication: EPILEPSY
     Dosage: 2 DF, DAILY
     Dates: start: 2011
  6. LAMOTRIGINE. [Concomitant]
     Active Substance: LAMOTRIGINE
     Indication: EPILEPSY
     Dosage: 2 DF, DAILY
     Dates: start: 2010
  7. ZOLPIDEM [Concomitant]
     Active Substance: ZOLPIDEM\ZOLPIDEM TARTRATE
     Indication: INSOMNIA
     Dosage: 1 DF, DAILY
     Dates: start: 2014

REACTIONS (16)
  - Myalgia [Recovered/Resolved]
  - Speech disorder [Unknown]
  - Abasia [Not Recovered/Not Resolved]
  - Pain [Recovered/Resolved]
  - Balance disorder [Unknown]
  - Foot fracture [Unknown]
  - Arthralgia [Unknown]
  - Swollen tongue [Unknown]
  - Hangover [Unknown]
  - Fall [Unknown]
  - Dry mouth [Unknown]
  - Feeling abnormal [Recovered/Resolved]
  - Tremor [Unknown]
  - Headache [Recovered/Resolved]
  - Disturbance in attention [Unknown]
  - Back pain [Unknown]
